FAERS Safety Report 6194849-5 (Version None)
Quarter: 2009Q2

REPORT INFORMATION
  Report Type: 
  Country: None (occurrence: None)
  Receive Date: 20090519
  Receipt Date: 20080728
  Transmission Date: 20091009
  Serious: Yes (Death)
  Sender: FDA-Public Use
  Company Number: US-TYCO HEALTHCARE/MALLINCKRODT-T200801248

PATIENT

DRUGS (8)
  1. METHADONE [Suspect]
     Indication: PAIN
     Dosage: 20 MG, QID
     Route: 048
     Dates: start: 20080418
  2. KLONOPIN [Concomitant]
     Indication: ANXIETY
     Dosage: 1 MG, BID
     Dates: start: 20080403
  3. KLONOPIN [Concomitant]
     Dosage: 2 MG, BID
     Dates: start: 20080418
  4. EFFEXOR XR [Concomitant]
     Indication: DEPRESSION
     Dosage: 75 MG, QD
     Dates: start: 20080403
  5. EFFEXOR XR [Concomitant]
     Dosage: 150 MG, QD
     Dates: start: 20080418
  6. VICODIN [Concomitant]
     Indication: PAIN
     Dosage: UNK, PRN
     Dates: start: 20080403
  7. VICODIN [Concomitant]
     Dosage: UNK, PRN
     Dates: start: 20080408
  8. BACTRIM [Concomitant]
     Indication: DRUG USE FOR UNKNOWN INDICATION
     Dates: start: 20080418

REACTIONS (2)
  - DRUG TOXICITY [None]
  - HEADACHE [None]
